FAERS Safety Report 4902353-4 (Version None)
Quarter: 2006Q1

REPORT INFORMATION
  Report Type: 
  Country: None (occurrence: None)
  Receive Date: 20060207
  Receipt Date: 20060126
  Transmission Date: 20060701
  Serious: Yes (Other)
  Sender: FDA-Public Use
  Company Number: PHFR2006GB00695

PATIENT
  Sex: Female

DRUGS (3)
  1. TEGRETOL [Suspect]
     Indication: EPILEPSY
     Dosage: UNK, UNK
     Dates: start: 19730101
  2. KEPPRA [Concomitant]
  3. LAMICTAL [Concomitant]

REACTIONS (2)
  - BRAIN OPERATION [None]
  - MEMORY IMPAIRMENT [None]
